FAERS Safety Report 16469031 (Version 1)
Quarter: 2019Q2

REPORT INFORMATION
  Report Type: Spontaneous
  Country: US (occurrence: US)
  Receive Date: 20190624
  Receipt Date: 20190624
  Transmission Date: 20190711
  Serious: No
  Sender: FDA-Public Use
  Company Number: US-PFIZER INC-2019247179

PATIENT
  Age: 55 Year
  Sex: Female
  Weight: 119.2 kg

DRUGS (3)
  1. PHENELZINE SULFATE. [Suspect]
     Active Substance: PHENELZINE SULFATE
     Indication: NARCOLEPSY
     Dosage: 90 MG, DAILY [3 IN THE MORNING AND 3 AT NIGHT]
     Dates: start: 1984
  2. PHENELZINE SULFATE. [Suspect]
     Active Substance: PHENELZINE SULFATE
     Indication: PANIC DISORDER
  3. PHENELZINE SULFATE. [Suspect]
     Active Substance: PHENELZINE SULFATE
     Indication: DEPRESSION
     Dosage: 75 MG, DAILY [2 BY MOUTH IN THE MORNING AND 3 BY MOUTH AT NIGHT]
     Route: 048

REACTIONS (1)
  - Drug ineffective [Unknown]
